FAERS Safety Report 7669469-3 (Version None)
Quarter: 2011Q3

REPORT INFORMATION
  Report Type: 
  Country: None (occurrence: None)
  Receive Date: 20110803
  Receipt Date: 20110719
  Transmission Date: 20111222
  Serious: Yes (Other)
  Sender: FDA-Public Use
  Company Number: 2011MA008025

PATIENT
  Age: 38 Year
  Sex: Female

DRUGS (6)
  1. CORTICOSTEROIDS [Concomitant]
  2. RIFAMPCIN CAPSULES, USP 300 MG (AMIDE) (RIFAMPICIN) [Suspect]
     Indication: PULMONARY TUBERCULOSIS
  3. PREDNISONE [Concomitant]
  4. ISONIAZID [Suspect]
     Indication: PULMONARY TUBERCULOSIS
  5. STREPTOMYCIN [Suspect]
     Indication: PULMONARY TUBERCULOSIS
  6. PYRAZINAMIDE [Suspect]
     Indication: PULMONARY TUBERCULOSIS

REACTIONS (2)
  - CONDITION AGGRAVATED [None]
  - ASTHMA [None]
